FAERS Safety Report 7980608-7 (Version None)
Quarter: 2011Q4

REPORT INFORMATION
  Report Type: 
  Country: None (occurrence: None)
  Receive Date: 20111214
  Receipt Date: 20111202
  Transmission Date: 20120403
  Serious: Yes (Hospitalization)
  Sender: FDA-Public Use
  Company Number: US-PFIZER INC-2010181039

PATIENT
  Age: 20 Year
  Sex: Male

DRUGS (4)
  1. SEPTRA [Suspect]
     Indication: TENOSYNOVITIS
     Dosage: 1 DF, UNK
  2. DOXYCYCLINE CALCIUM [Suspect]
     Indication: TENOSYNOVITIS
     Dosage: 1 DF, UNK
  3. VANCOMYCIN HYCHLORIDE [Suspect]
     Indication: TENOSYNOVITIS
     Dosage: 1 DF, UNK
  4. CEFTRIAXONE SODIUM [Suspect]
     Indication: TENOSYNOVITIS
     Dosage: 1 DF, UNK

REACTIONS (8)
  - MYALGIA [None]
  - DISSEMINATED INTRAVASCULAR COAGULATION [None]
  - DRUG RASH WITH EOSINOPHILIA AND SYSTEMIC SYMPTOMS [None]
  - HERPES VIRUS INFECTION [None]
  - RENAL FAILURE [None]
  - SPLENIC INFARCTION [None]
  - RESPIRATORY FAILURE [None]
  - SEPTIC SHOCK [None]
